FAERS Safety Report 16721986 (Version 1)
Quarter: 2019Q3

REPORT INFORMATION
  Report Type: Spontaneous
  Country: US (occurrence: US)
  Receive Date: 20190820
  Receipt Date: 20190820
  Transmission Date: 20191005
  Serious: Yes (Other)
  Sender: FDA-Public Use
  Company Number: US-TEVA-2019-US-1093722

PATIENT
  Age: 67 Year
  Sex: Female

DRUGS (4)
  1. OLARATUMAB [Concomitant]
     Active Substance: OLARATUMAB
     Indication: LEIOMYOSARCOMA RECURRENT
     Route: 065
  2. TRABECTEDIN [Concomitant]
     Active Substance: TRABECTEDIN
     Indication: LEIOMYOSARCOMA RECURRENT
     Route: 065
  3. DOXORUBICIN [Suspect]
     Active Substance: DOXORUBICIN
     Indication: LEIOMYOSARCOMA RECURRENT
     Route: 065
  4. PAZOPANIB [Suspect]
     Active Substance: PAZOPANIB
     Indication: LEIOMYOSARCOMA RECURRENT
     Route: 065

REACTIONS (1)
  - Cardiac failure [Recovering/Resolving]
